FAERS Safety Report 15688229 (Version 1)
Quarter: 2018Q4

REPORT INFORMATION
  Report Type: Spontaneous
  Country: US (occurrence: US)
  Receive Date: 20181205
  Receipt Date: 20181205
  Transmission Date: 20190205
  Serious: No
  Sender: FDA-Public Use
  Company Number: US-HIKMA PHARMACEUTICALS USA INC.-US-H14001-17-04367

PATIENT
  Sex: Female
  Weight: 65.83 kg

DRUGS (2)
  1. PROBIOTICS [Concomitant]
     Active Substance: PROBIOTICS NOS
     Indication: PRODUCT USED FOR UNKNOWN INDICATION
     Route: 065
  2. IPRATROPIUM BROMIDE. [Suspect]
     Active Substance: IPRATROPIUM BROMIDE
     Indication: RHINORRHOEA
     Route: 045
     Dates: start: 2017

REACTIONS (2)
  - Underdose [Unknown]
  - Rhinorrhoea [Not Recovered/Not Resolved]
